FAERS Safety Report 15544094 (Version 2)
Quarter: 2018Q4

REPORT INFORMATION
  Report Type: Report from Study
  Country: None (occurrence: BE)
  Receive Date: 20181024
  Receipt Date: 20181029
  Transmission Date: 20190205
  Serious: Yes (Hospitalization)
  Sender: FDA-Public Use
  Company Number: BE-ABBVIE-18S-013-2525216-00

PATIENT
  Age: 69 Year
  Sex: Male

DRUGS (3)
  1. DUODOPA [Suspect]
     Active Substance: CARBIDOPA\LEVODOPA
     Indication: PARKINSON^S DISEASE
     Dosage: MD=8ML?CD=3.3ML/HR DURING 16HRS ?ED=1.5ML
     Route: 050
     Dates: start: 20130402, end: 20140616
  2. DUODOPA [Suspect]
     Active Substance: CARBIDOPA\LEVODOPA
     Dosage: MD=3ML??CD=5ML/HR DURING 16HRS ??ED=3.5ML??ND=4ML/HR DURING 8HRS
     Route: 050
     Dates: start: 20180129
  3. DUODOPA [Suspect]
     Active Substance: CARBIDOPA\LEVODOPA
     Dosage: DOSES CONTINUOUSLY MONITORED AND ADAPTED
     Route: 050
     Dates: start: 20140616, end: 20180129

REACTIONS (3)
  - Stoma site abscess [Recovering/Resolving]
  - Asthenia [Unknown]
  - Streptococcal infection [Recovering/Resolving]

NARRATIVE: CASE EVENT DATE: 2018
